FAERS Safety Report 15706955 (Version 1)
Quarter: 2018Q4

REPORT INFORMATION
  Report Type: Spontaneous
  Country: JP (occurrence: JP)
  Receive Date: 20181210
  Receipt Date: 20181210
  Transmission Date: 20190205
  Serious: Yes (Hospitalization)
  Sender: FDA-Public Use
  Company Number: JP-MYLANLABS-2018M1088203

PATIENT
  Age: 63 Year
  Sex: Male

DRUGS (6)
  1. PANITUMUMAB [Concomitant]
     Active Substance: PANITUMUMAB
     Indication: ADENOCARCINOMA OF COLON
     Dosage: ALONGSIDE THE FOLFIRI REGIMEN
     Route: 065
  2. OXALIPLATIN. [Concomitant]
     Active Substance: OXALIPLATIN
     Indication: ADENOCARCINOMA OF COLON
     Dosage: AS A PART OF THE MFOLFOX6 REGIMEN
     Route: 065
     Dates: start: 201701
  3. FOLINIC ACID [Concomitant]
     Active Substance: LEUCOVORIN
     Indication: ADENOCARCINOMA OF COLON
     Dosage: AS A PART OF THE MFOLFOX6 REGIMEN IN JANUARY 2017 AND FOLFIRI REGIMEN FROM FEBRUARY 2017 TO AUGUS..
     Route: 065
  4. IRINOTECAN [Concomitant]
     Active Substance: IRINOTECAN
     Indication: ADENOCARCINOMA OF COLON
     Dosage: AS A PART OF THE FOLFIRI REGIMEN
     Route: 065
     Dates: start: 201702, end: 201708
  5. BEVACIZUMAB. [Concomitant]
     Active Substance: BEVACIZUMAB
     Indication: ADENOCARCINOMA OF COLON
     Dosage: ALONGSIDE THE MFOLFOX6 REGIMEN
     Route: 065
  6. FLUOROURACIL. [Suspect]
     Active Substance: FLUOROURACIL
     Indication: ADENOCARCINOMA OF COLON
     Dosage: AS A PART OF THE MFOLFOX6 REGIMEN IN JANUARY 2017 AND FOLFIRI REGIMEN FROM FEBRUARY 2017 TO AUGUS...
     Route: 065
     Dates: start: 201701, end: 201708

REACTIONS (3)
  - Nicotinic acid deficiency [Recovering/Resolving]
  - Dehydration [Recovering/Resolving]
  - Anaemia [Recovering/Resolving]
